FAERS Safety Report 20142146 (Version 1)
Quarter: 2021Q4

REPORT INFORMATION
  Report Type: Spontaneous
  Country: RU (occurrence: RU)
  Receive Date: 20211202
  Receipt Date: 20211202
  Transmission Date: 20220303
  Serious: Yes (Other)
  Sender: FDA-Public Use
  Company Number: RU-AMERICAN REGENT INC-2021003133

PATIENT
  Age: 0 Day
  Sex: Female
  Weight: 2.35 kg

DRUGS (6)
  1. VENOFER [Suspect]
     Active Substance: IRON SUCROSE
     Indication: Anaemia of pregnancy
     Dosage: UNK
     Route: 064
  2. FERINJECT [Suspect]
     Active Substance: FERRIC CARBOXYMALTOSE
     Indication: Anaemia of pregnancy
     Dosage: UNK
     Route: 064
  3. IRON POLYMALTOSE [Suspect]
     Active Substance: IRON POLYMALTOSE
     Indication: Anaemia of pregnancy
     Dosage: UNK
     Route: 064
  4. IRON POLYMALTOSE [Suspect]
     Active Substance: IRON POLYMALTOSE
     Indication: Anaemia of pregnancy
     Dosage: UNK
     Route: 064
  5. TACROLIMUS [Suspect]
     Active Substance: TACROLIMUS
     Indication: Product used for unknown indication
     Dosage: UNK, PROLONGED ACTION
     Route: 064
  6. ERYTHROPOIETIN [Suspect]
     Active Substance: ERYTHROPOIETIN
     Indication: Anaemia of pregnancy
     Dosage: UNK
     Route: 064

REACTIONS (3)
  - Premature baby [Unknown]
  - Low birth weight baby [Unknown]
  - Foetal exposure during pregnancy [Unknown]

NARRATIVE: CASE EVENT DATE: 20210621
